FAERS Safety Report 16333737 (Version 1)
Quarter: 2019Q2

REPORT INFORMATION
  Report Type: Spontaneous
  Country: NO (occurrence: NO)
  Receive Date: 20190520
  Receipt Date: 20190520
  Transmission Date: 20190711
  Serious: Yes (Hospitalization)
  Sender: FDA-Public Use
  Company Number: NO-TEVA-2019-NO-1051329

PATIENT
  Age: 81 Year
  Sex: Female

DRUGS (2)
  1. BENZYLPENICILLIN [Suspect]
     Active Substance: PENICILLIN G
     Indication: URINARY TRACT INFECTION
     Dates: start: 201903
  2. ATORVASTATIN [Suspect]
     Active Substance: ATORVASTATIN
     Indication: ARTERIOSCLEROSIS
     Dates: start: 201903

REACTIONS (7)
  - Transaminases increased [Recovering/Resolving]
  - Pleural effusion [Recovering/Resolving]
  - Cholestasis [Recovering/Resolving]
  - Drug-induced liver injury [Recovering/Resolving]
  - Bone marrow failure [Recovering/Resolving]
  - Neutropenia [Recovering/Resolving]
  - Anaemia [Recovering/Resolving]

NARRATIVE: CASE EVENT DATE: 20190312
